FAERS Safety Report 4290900-8 (Version None)
Quarter: 2004Q1

REPORT INFORMATION
  Report Type: 
  Country: None (occurrence: None)
  Receive Date: 20040209
  Receipt Date: 20040112
  Transmission Date: 20041129
  Serious: Yes (Hospitalization)
  Sender: FDA-Public Use
  Company Number: CA-JNJFOC-20040106204

PATIENT
  Age: 9 Year
  Sex: Female
  Weight: 28.8034 kg

DRUGS (2)
  1. CONCERTA [Suspect]
     Dosage: 54 MG, 1 IN 1 DAY, ORAL
     Route: 048
     Dates: start: 20030724, end: 20040109
  2. CLONIDINE [Concomitant]

REACTIONS (9)
  - ABDOMINAL PAIN [None]
  - DEHYDRATION [None]
  - ENTEROCOCCAL INFECTION [None]
  - HYPERTENSION [None]
  - INSOMNIA [None]
  - NAUSEA [None]
  - PSYCHOMOTOR HYPERACTIVITY [None]
  - URINARY TRACT INFECTION [None]
  - VOMITING [None]
